FAERS Safety Report 16410487 (Version 1)
Quarter: 2019Q3

REPORT INFORMATION
  Report Type: Spontaneous
  Country: US (occurrence: US)
  Receive Date: 20190607
  Receipt Date: 20190607
  Transmission Date: 20191004
  Serious: Yes (Other)
  Sender: FDA-Public Use
  Company Number: None

PATIENT
  Age: 88 Year
  Sex: Female
  Weight: 53.1 kg

DRUGS (8)
  1. COLONODINE [Concomitant]
  2. COZAAR [Concomitant]
     Active Substance: LOSARTAN POTASSIUM
  3. FIRDAPSE [Suspect]
     Active Substance: AMIFAMPRIDINE
     Indication: MYASTHENIC SYNDROME
     Dosage: ?          QUANTITY:1.5 TABLET(S);OTHER FREQUENCY:5 TIMES A DAY;?
     Route: 048
  4. ELIQUIS [Concomitant]
     Active Substance: APIXABAN
  5. IVIG EVERY OTHER MONTH [Concomitant]
  6. HYDROCHOROCIAZIDE [Concomitant]
  7. PROLIA TWICE A YEAR [Concomitant]
  8. VITAMIN D [Concomitant]
     Active Substance: VITAMIN D NOS

REACTIONS (3)
  - Dyspnoea [None]
  - Loss of personal independence in daily activities [None]
  - Therapeutic product effect incomplete [None]

NARRATIVE: CASE EVENT DATE: 20190516
